FAERS Safety Report 6717204-5 (Version None)
Quarter: 2010Q2

REPORT INFORMATION
  Report Type: 
  Country: None (occurrence: None)
  Receive Date: 20100510
  Receipt Date: 20100427
  Transmission Date: 20101027
  Serious: Yes (Other)
  Sender: FDA-Public Use
  Company Number: PHHY2010BR27785

PATIENT
  Sex: Female

DRUGS (1)
  1. EXELON [Suspect]

REACTIONS (2)
  - BLISTER [None]
  - WOUND [None]
